FAERS Safety Report 15248320 (Version 1)
Quarter: 2018Q3

REPORT INFORMATION
  Report Type: Spontaneous
  Country: US (occurrence: US)
  Receive Date: 20180715
  Receipt Date: 20180715
  Transmission Date: 20181010
  Serious: Yes (Other)
  Sender: FDA-Public Use
  Company Number: None

PATIENT
  Age: 51 Year
  Sex: Female
  Weight: 51.3 kg

DRUGS (6)
  1. FOLIC ACID. [Concomitant]
     Active Substance: FOLIC ACID
  2. DIGOXIN. [Concomitant]
     Active Substance: DIGOXIN
  3. ATORVASTATIN [Concomitant]
     Active Substance: ATORVASTATIN
  4. MOXIFLOXACIN. [Concomitant]
     Active Substance: MOXIFLOXACIN
  5. LEFLUNOMIDE. [Suspect]
     Active Substance: LEFLUNOMIDE
     Indication: RHEUMATOID ARTHRITIS
     Dosage: ?          QUANTITY:1 TABLET(S);?
     Route: 048
  6. OLOPATADINE. [Concomitant]
     Active Substance: OLOPATADINE

REACTIONS (7)
  - Headache [None]
  - Respiratory disorder [None]
  - Hepatic enzyme increased [None]
  - Dyspnoea [None]
  - Rash [None]
  - Nausea [None]
  - Rhinitis [None]

NARRATIVE: CASE EVENT DATE: 20171220
